FAERS Safety Report 10907026 (Version 9)
Quarter: 2016Q1

REPORT INFORMATION
  Report Type: Report from Study
  Country: CA (occurrence: CA)
  Receive Date: 20150312
  Receipt Date: 20160112
  Transmission Date: 20160525
  Serious: Yes (Death, Hospitalization, Other)
  Sender: FDA-Public Use
  Company Number: CA-ROCHE-1461583

PATIENT
  Age: 62 Year
  Sex: Female
  Weight: 84 kg

DRUGS (5)
  1. ACTEMRA [Suspect]
     Active Substance: TOCILIZUMAB
     Indication: TEMPORAL ARTERITIS
     Route: 042
     Dates: start: 20150211
  2. VALIUM [Suspect]
     Active Substance: DIAZEPAM
     Indication: PRODUCT USED FOR UNKNOWN INDICATION
     Route: 065
  3. METHOTREXATE [Concomitant]
     Active Substance: METHOTREXATE
  4. ACTEMRA [Suspect]
     Active Substance: TOCILIZUMAB
     Indication: VASCULITIS
     Route: 042
     Dates: start: 20140227
  5. PREDNISONE. [Concomitant]
     Active Substance: PREDNISONE

REACTIONS (13)
  - Respiratory disorder [Fatal]
  - Colitis ulcerative [Not Recovered/Not Resolved]
  - Wound [Unknown]
  - Oxygen saturation decreased [Unknown]
  - Osteomyelitis [Unknown]
  - Off label use [Unknown]
  - Fall [Unknown]
  - Colitis ischaemic [Unknown]
  - Weight increased [Not Recovered/Not Resolved]
  - Cardiac disorder [Fatal]
  - Blood pressure systolic decreased [Unknown]
  - Drug hypersensitivity [Unknown]
  - Intestinal ischaemia [Unknown]

NARRATIVE: CASE EVENT DATE: 20150211
